FAERS Safety Report 11539495 (Version 2)
Quarter: 2015Q4

REPORT INFORMATION
  Report Type: Report from Study
  Country: US (occurrence: US)
  Receive Date: 20150923
  Receipt Date: 20151027
  Transmission Date: 20160304
  Serious: Yes (Hospitalization)
  Sender: FDA-Public Use
  Company Number: US-JNJFOC-20150716776

PATIENT
  Age: 67 Year
  Sex: Male
  Weight: 77.57 kg

DRUGS (1)
  1. STELARA [Suspect]
     Active Substance: USTEKINUMAB
     Indication: PSORIASIS
     Route: 058
     Dates: start: 201107

REACTIONS (2)
  - Upper gastrointestinal haemorrhage [Recovered/Resolved]
  - Epiglottitis [Recovered/Resolved with Sequelae]

NARRATIVE: CASE EVENT DATE: 20141127
